FAERS Safety Report 5142114-7 (Version None)
Quarter: 2006Q4

REPORT INFORMATION
  Report Type: 
  Country: None (occurrence: None)
  Receive Date: 20061102
  Receipt Date: 20050207
  Transmission Date: 20070319
  Serious: Yes (Hospitalization, Other)
  Sender: FDA-Public Use
  Company Number: PL-BRISTOL-MYERS SQUIBB COMPANY-12853552

PATIENT
  Age: 70 Year
  Sex: Female
  Weight: 86 kg

DRUGS (3)
  1. IRBESARTAN [Suspect]
     Indication: HYPERTENSION
     Dates: start: 20040510
  2. BLINDED: PLACEBO [Suspect]
     Indication: HYPERTENSION
     Dates: start: 20040510
  3. ACENOCOUMAROL [Suspect]
     Indication: PROPHYLAXIS
     Dosage: INTERRUPTED; RE-STARTED 08-FEB-2005
     Dates: start: 20040510

REACTIONS (7)
  - ACCIDENTAL OVERDOSE [None]
  - DRUG TOXICITY [None]
  - EPISTAXIS [None]
  - GASTROINTESTINAL HAEMORRHAGE [None]
  - INTERNATIONAL NORMALISED RATIO INCREASED [None]
  - MEDICATION ERROR [None]
  - PUNCTURE SITE HAEMORRHAGE [None]
